FAERS Safety Report 25719576 (Version 1)
Quarter: 2025Q3

REPORT INFORMATION
  Report Type: Spontaneous
  Country: EU (occurrence: EU)
  Receive Date: 20250825
  Receipt Date: 20250825
  Transmission Date: 20251020
  Serious: Yes (Death, Other)
  Sender: GLAXOSMITHKLINE
  Company Number: None

PATIENT
  Age: 78 Year
  Sex: Male
  Weight: 79 kg

DRUGS (1)
  1. MOMELOTINIB [Suspect]
     Active Substance: MOMELOTINIB
     Indication: Myelofibrosis

REACTIONS (6)
  - Gastroenteritis [Fatal]
  - Hyperthermia [Fatal]
  - Cholecystitis acute [Fatal]
  - Thrombocytopenia [Fatal]
  - Hyperleukocytosis [Fatal]
  - Respiratory distress [Fatal]

NARRATIVE: CASE EVENT DATE: 20250623
